FAERS Safety Report 12009254 (Version 1)
Quarter: 2016Q1

REPORT INFORMATION
  Report Type: Spontaneous
  Country: US (occurrence: None)
  Receive Date: 20160204
  Receipt Date: 20160204
  Transmission Date: 20160526
  Serious: Yes (Life-Threatening, Hospitalization)
  Sender: FDA-Public Use
  Company Number: None

PATIENT
  Age: 32 Year
  Sex: Female
  Weight: 157.4 kg

DRUGS (9)
  1. ONDANSETRON [Concomitant]
     Active Substance: ONDANSETRON
  2. HEPARIN PFIZER [Concomitant]
     Active Substance: HEPARIN SODIUM
  3. ACETAMINOPHEN. [Concomitant]
     Active Substance: ACETAMINOPHEN
  4. DEXTROSE 5% [Concomitant]
     Active Substance: DEXTROSE
  5. DEXTROSE 50% [Concomitant]
     Active Substance: DEXTROSE
  6. FAMOTIDINE. [Concomitant]
     Active Substance: FAMOTIDINE
  7. NEOMYCIN-BACITRACIN-POLYMYXIN [Concomitant]
  8. ELECTROLYTE REPLACEMENT [Concomitant]
  9. FARXIGA [Suspect]
     Active Substance: DAPAGLIFLOZIN PROPANEDIOL
     Indication: DIABETES MELLITUS INADEQUATE CONTROL
     Dosage: 1 PILL QD ORAL

REACTIONS (1)
  - Diabetic ketoacidosis [None]

NARRATIVE: CASE EVENT DATE: 20160201
